APPROVED DRUG PRODUCT: KLONOPIN RAPIDLY DISINTEGRATING
Active Ingredient: CLONAZEPAM
Strength: 0.25MG **Federal Register determination that product was not discontinued or withdrawn for safety or effectiveness reasons**
Dosage Form/Route: TABLET, ORALLY DISINTEGRATING;ORAL
Application: N020813 | Product #002
Applicant: HOFFMANN LA ROCHE INC
Approved: Dec 23, 1997 | RLD: Yes | RS: No | Type: DISCN